FAERS Safety Report 6605260-4 (Version None)
Quarter: 2010Q1

REPORT INFORMATION
  Report Type: 
  Country: None (occurrence: None)
  Receive Date: 20100226
  Receipt Date: 20100218
  Transmission Date: 20100710
  Serious: Yes (Hospitalization)
  Sender: FDA-Public Use
  Company Number: IL-ASTRAZENECA-2010SE07133

PATIENT
  Age: 23 Year
  Sex: Male

DRUGS (2)
  1. SEROQUEL [Suspect]
     Indication: ANXIETY
     Route: 048
     Dates: start: 20100115
  2. SEROQUEL [Suspect]
     Indication: MOOD ALTERED
     Route: 048
     Dates: start: 20100115

REACTIONS (5)
  - DYSKINESIA [None]
  - DYSPNOEA [None]
  - HYPERKINESIA [None]
  - HYPERVENTILATION [None]
  - RESPIRATORY RATE INCREASED [None]
